FAERS Safety Report 6746589-9 (Version None)
Quarter: 2010Q2

REPORT INFORMATION
  Report Type: 
  Country: None (occurrence: None)
  Receive Date: 20100528
  Receipt Date: 20100218
  Transmission Date: 20101027
  Serious: No
  Sender: FDA-Public Use
  Company Number: US-ASTRAZENECA-2010SE08636

PATIENT
  Sex: Female

DRUGS (2)
  1. PRILOSEC OTC [Suspect]
     Route: 048
  2. CORICIDIN [Suspect]
     Route: 048

REACTIONS (4)
  - DYSPNOEA [None]
  - FEELING JITTERY [None]
  - HEART RATE INCREASED [None]
  - HEART RATE IRREGULAR [None]
